FAERS Safety Report 25778486 (Version 1)
Quarter: 2025Q3

REPORT INFORMATION
  Report Type: Spontaneous
  Country: US (occurrence: US)
  Receive Date: 20250909
  Receipt Date: 20250909
  Transmission Date: 20251021
  Serious: No
  Sender: CIPLA
  Company Number: US-CIPLA LTD.-2024US13721

PATIENT

DRUGS (6)
  1. DICLOFENAC [Suspect]
     Active Substance: DICLOFENAC
     Indication: Arthralgia
     Route: 061
     Dates: start: 20241118
  2. LOSARTAN [Concomitant]
     Active Substance: LOSARTAN
     Indication: Hypertension
     Dosage: 2.5 MILLIGRAM, QD (COUPLE YEARS, MAY BE 10 YEARS, CAN^T REMEMBER)
     Route: 065
  3. ATORVASTATIN [Concomitant]
     Active Substance: ATORVASTATIN
     Indication: Blood cholesterol abnormal
     Dosage: 0.5 DOSAGE FORM, QD
     Route: 065
     Dates: start: 2014
  4. VITAMIN C [Concomitant]
     Active Substance: ASCORBIC ACID
     Indication: Vitamin supplementation
     Dosage: 500 MILLIGRAM, QD (ONE PILL A DAY)
     Route: 065
     Dates: start: 2014
  5. FERROUS SULFATE [Concomitant]
     Active Substance: FERROUS SULFATE
     Indication: Mineral supplementation
     Dosage: UNK, QD (JUST FOR IRON, STRENGTH: UNKNOWN)
     Route: 065
     Dates: start: 2014
  6. CYANOCOBALAMIN\DEXPANTHENOL\NIACINAMIDE\PYRIDOXINE HYDROCHLORIDE\RIBOF [Concomitant]
     Active Substance: CYANOCOBALAMIN\DEXPANTHENOL\NIACINAMIDE\PYRIDOXINE HYDROCHLORIDE\RIBOFLAVIN 5^-PHOSPHATE SODIUM\THIA
     Indication: Vitamin supplementation
     Dosage: UNK, QD (ONCE A DAY, STRENGTH: UNKNOWN) ((WITH FOLIC ACID))
     Route: 065
     Dates: start: 2014

REACTIONS (2)
  - Incorrect dose administered [Unknown]
  - Product label issue [Unknown]

NARRATIVE: CASE EVENT DATE: 20241118
